FAERS Safety Report 5548811-3 (Version None)
Quarter: 2007Q4

REPORT INFORMATION
  Report Type: 
  Country: None (occurrence: None)
  Receive Date: 20071211
  Receipt Date: 20070403
  Transmission Date: 20080405
  Serious: No
  Sender: FDA-Public Use
  Company Number: US-AMGEN-KDL215355

PATIENT
  Sex: Female
  Weight: 54.5 kg

DRUGS (7)
  1. ENBREL [Suspect]
     Indication: RHEUMATOID ARTHRITIS
     Route: 058
     Dates: start: 20060701
  2. SYNTHROID [Concomitant]
  3. LISINOPRIL [Concomitant]
  4. OMEPRAZOLE [Concomitant]
  5. AXID [Concomitant]
  6. CALCIUM [Concomitant]
  7. VITAMIN D [Concomitant]

REACTIONS (3)
  - CONTUSION [None]
  - INJECTION SITE HAEMORRHAGE [None]
  - TENDON RUPTURE [None]
